FAERS Safety Report 6124608-0 (Version None)
Quarter: 2009Q1

REPORT INFORMATION
  Report Type: 
  Country: None (occurrence: None)
  Receive Date: 20090319
  Receipt Date: 20090317
  Transmission Date: 20090719
  Serious: Yes (Death, Hospitalization)
  Sender: FDA-Public Use
  Company Number: A0773853A

PATIENT
  Age: 36 Year
  Sex: Male

DRUGS (2)
  1. FLOLAN [Suspect]
     Indication: DRUG USE FOR UNKNOWN INDICATION
     Dosage: 1.5MG UNKNOWN
     Route: 065
  2. FLOLAN [Suspect]
     Indication: DRUG USE FOR UNKNOWN INDICATION
     Route: 065

REACTIONS (1)
  - DEATH [None]
